FAERS Safety Report 19681757 (Version 1)
Quarter: 2021Q3

REPORT INFORMATION
  Report Type: Report from Study
  Country: CA (occurrence: CA)
  Receive Date: 20210810
  Receipt Date: 20210810
  Transmission Date: 20211014
  Serious: Yes (Other)
  Sender: FDA-Public Use
  Company Number: CA-JNJFOC-20210802062

PATIENT
  Age: 75 Year
  Sex: Female

DRUGS (2)
  1. MACITENTAN [Suspect]
     Active Substance: MACITENTAN
     Indication: PULMONARY ARTERIAL HYPERTENSION
     Route: 048
     Dates: start: 20210624
  2. SELEXIPAG [Suspect]
     Active Substance: SELEXIPAG
     Indication: CONNECTIVE TISSUE DISORDER
     Route: 048
     Dates: start: 20210723

REACTIONS (2)
  - Dyspnoea [Recovering/Resolving]
  - Pain in jaw [Recovering/Resolving]

NARRATIVE: CASE EVENT DATE: 20210723
